FAERS Safety Report 9490424 (Version 1)
Quarter: 2013Q3

REPORT INFORMATION
  Report Type: Spontaneous
  Country: US (occurrence: None)
  Receive Date: 20130827
  Receipt Date: 20130827
  Transmission Date: 20140515
  Serious: Yes (Other)
  Sender: FDA-Public Use
  Company Number: None

PATIENT
  Age: 83 Year
  Sex: Male
  Weight: 83.92 kg

DRUGS (1)
  1. ALEVE TABLETS [Suspect]
     Indication: BACK PAIN
     Dosage: 2 PILLS  TOOK TWO, ONE TIME  MOUTH
     Route: 048

REACTIONS (4)
  - Pruritus [None]
  - Urticaria [None]
  - Heart rate increased [None]
  - Skin discolouration [None]
